FAERS Safety Report 5844747-9 (Version None)
Quarter: 2008Q3

REPORT INFORMATION
  Report Type: 
  Country: None (occurrence: None)
  Receive Date: 20080814
  Receipt Date: 20080806
  Transmission Date: 20090109
  Serious: Yes (Other)
  Sender: FDA-Public Use
  Company Number: GB-JNJFOC-20080706226

PATIENT
  Sex: Female

DRUGS (2)
  1. MEBENDAZOLE [Suspect]
     Indication: MEDICATION ERROR
     Route: 048
  2. METRONIDAZOLE HCL [Concomitant]
     Indication: DRUG USE FOR UNKNOWN INDICATION
     Route: 065
     Dates: start: 20080723

REACTIONS (5)
  - DIARRHOEA [None]
  - MEDICATION ERROR [None]
  - MUSCLE SPASMS [None]
  - NAUSEA [None]
  - VOMITING [None]
